FAERS Safety Report 12438647 (Version 3)
Quarter: 2016Q2

REPORT INFORMATION
  Report Type: Spontaneous
  Country: US (occurrence: US)
  Receive Date: 20160606
  Receipt Date: 20160617
  Transmission Date: 20160815
  Serious: Yes (Other)
  Sender: FDA-Public Use
  Company Number: US-PFIZER INC-2016279937

PATIENT
  Age: 64 Year
  Sex: Male

DRUGS (1)
  1. LYRICA [Suspect]
     Active Substance: PREGABALIN
     Indication: NEUROPATHY PERIPHERAL
     Dosage: UNK
     Dates: end: 201605

REACTIONS (6)
  - Gait disturbance [Unknown]
  - Upper respiratory tract infection [Unknown]
  - Insomnia [Unknown]
  - Muscle spasms [Unknown]
  - Pain in extremity [Unknown]
  - Impaired work ability [Unknown]
